FAERS Safety Report 19125239 (Version 3)
Quarter: 2023Q4

REPORT INFORMATION
  Report Type: Spontaneous
  Country: US (occurrence: US)
  Receive Date: 20210412
  Receipt Date: 20231020
  Transmission Date: 20240110
  Serious: No
  Sender: FDA-Public Use
  Company Number: US-PFIZER INC-2021299588

PATIENT
  Age: 70 Year
  Sex: Female
  Weight: 46.712 kg

DRUGS (1)
  1. XELJANZ [Suspect]
     Active Substance: TOFACITINIB CITRATE
     Indication: Rheumatoid arthritis
     Dosage: 5 MG, 2X/DAY
     Dates: start: 2019

REACTIONS (3)
  - Withdrawal syndrome [Unknown]
  - Agitation [Unknown]
  - Pain [Unknown]
